FAERS Safety Report 8321987-0 (Version None)
Quarter: 2012Q2

REPORT INFORMATION
  Report Type: 
  Country: None (occurrence: None)
  Receive Date: 20120430
  Receipt Date: 20120425
  Transmission Date: 20120825
  Serious: No
  Sender: FDA-Public Use
  Company Number: US-PFIZER INC-2012102829

PATIENT
  Sex: Female
  Weight: 75.737 kg

DRUGS (7)
  1. SOLU-CORTEF [Suspect]
     Indication: ADRENOCORTICAL INSUFFICIENCY ACUTE
     Dosage: UNK, AS NEEDED
  2. ZANAFLEX [Concomitant]
     Indication: MUSCLE RELAXANT THERAPY
     Dosage: UNK
  3. KLOR-CON [Concomitant]
     Dosage: UNK
  4. HYDROCORTISONE [Concomitant]
     Indication: ADRENOCORTICAL INSUFFICIENCY ACUTE
     Dosage: UNK
  5. SOLU-CORTEF [Suspect]
     Dosage: 100 MG, UNK
  6. LASIX [Concomitant]
     Indication: FLUID RETENTION
     Dosage: 40 MG, DAILY
  7. CELEXA [Concomitant]
     Indication: FIBROMYALGIA
     Dosage: UNK

REACTIONS (2)
  - BLISTER [None]
  - SKIN DISCOLOURATION [None]
